FAERS Safety Report 5199917-2 (Version None)
Quarter: 2007Q1

REPORT INFORMATION
  Report Type: 
  Country: None (occurrence: None)
  Receive Date: 20070105
  Receipt Date: 20061227
  Transmission Date: 20070707
  Serious: Yes (Hospitalization)
  Sender: FDA-Public Use
  Company Number: GB-ABBOTT-06P-167-0353189-00

PATIENT
  Age: 47 Year
  Sex: Male

DRUGS (14)
  1. LOPINAVIR/RITONAVIR [Suspect]
     Indication: SYSTEMIC ANTIVIRAL TREATMENT
     Route: 048
     Dates: start: 20020101, end: 20050301
  2. LOPINAVIR/RITONAVIR [Suspect]
     Dates: start: 20050501
  3. LOPINAVIR/RITONAVIR [Suspect]
     Dates: start: 20050601
  4. NIFEDIPINE [Interacting]
     Indication: BLOOD PRESSURE MANAGEMENT
     Dates: start: 20020101, end: 20050501
  5. NIFEDIPINE [Interacting]
  6. STAVUDINE [Interacting]
     Indication: SYSTEMIC ANTIVIRAL TREATMENT
     Dates: start: 20020101, end: 20050301
  7. STAVUDINE [Interacting]
     Dates: start: 20050601
  8. LAMIVUDINE [Interacting]
     Indication: SYSTEMIC ANTIVIRAL TREATMENT
     Dates: start: 20020101, end: 20050301
  9. LAMIVUDINE [Interacting]
     Dates: start: 20050601
  10. DOXAZOSIN MESYLATE [Concomitant]
     Indication: BLOOD PRESSURE MANAGEMENT
     Dates: start: 20020101, end: 20050501
  11. FUROSEMIDE [Concomitant]
     Indication: BLOOD PRESSURE MANAGEMENT
     Dates: start: 20020101, end: 20050501
  12. ENALAPRIL MALEATE [Concomitant]
     Indication: BLOOD PRESSURE MANAGEMENT
     Dates: start: 20050501
  13. LOSARTAN POTASSIUM [Concomitant]
     Indication: BLOOD PRESSURE MANAGEMENT
     Dates: start: 20050501
  14. AMLODIPINE [Concomitant]
     Indication: BLOOD PRESSURE MANAGEMENT
     Dates: start: 20050601

REACTIONS (3)
  - DRUG INTERACTION [None]
  - GENERALISED OEDEMA [None]
  - RENAL FAILURE ACUTE [None]
